FAERS Safety Report 9548894 (Version 1)
Quarter: 2013Q3

REPORT INFORMATION
  Report Type: Spontaneous
  Country: US (occurrence: None)
  Receive Date: 20130923
  Receipt Date: 20130923
  Transmission Date: 20140515
  Serious: Yes (Disabling, Other)
  Sender: FDA-Public Use
  Company Number: None

PATIENT
  Sex: Female
  Weight: 109.77 kg

DRUGS (1)
  1. ACYCLOVIR [Suspect]
     Dosage: 1 PILL
     Route: 048

REACTIONS (7)
  - Back pain [None]
  - Nausea [None]
  - Diarrhoea [None]
  - Decreased appetite [None]
  - Chest pain [None]
  - Musculoskeletal chest pain [None]
  - Dysstasia [None]
